FAERS Safety Report 23915377 (Version 1)
Quarter: 2024Q2

REPORT INFORMATION
  Report Type: Spontaneous
  Country: CA (occurrence: CA)
  Receive Date: 20240529
  Receipt Date: 20240529
  Transmission Date: 20240717
  Serious: Yes (Hospitalization, Other)
  Sender: FDA-Public Use
  Company Number: CA-PFIZER INC-202400179496

PATIENT
  Age: 76 Year
  Sex: Male

DRUGS (1)
  1. ABRILADA [Suspect]
     Active Substance: ADALIMUMAB-AFZB
     Indication: Rheumatoid arthritis
     Dosage: 40 MG, EVERY 2 WEEK (EVERY OTHER WEEK, PREFILLED PEN)
     Route: 058
     Dates: start: 20231126

REACTIONS (2)
  - Haemoglobin decreased [Unknown]
  - Infection [Unknown]
